FAERS Safety Report 5817358-9 (Version None)
Quarter: 2008Q3

REPORT INFORMATION
  Report Type: 
  Country: None (occurrence: None)
  Receive Date: 20080715
  Receipt Date: 20080702
  Transmission Date: 20090109
  Serious: Yes (Death)
  Sender: FDA-Public Use
  Company Number: 100#01#2008-03098

PATIENT
  Age: 3 Year
  Sex: Female

DRUGS (2)
  1. SUMAMED(125 MILLIGRAM, TABLETS) (AZITHROMYCIN) [Suspect]
     Indication: NASOPHARYNGITIS
     Dosage: ONCE, ORAL
     Route: 048
  2. LINEX (CAPSULES) (LACTROBACILLUS ACIDOPHILUS) [Concomitant]

REACTIONS (9)
  - ASPHYXIA [None]
  - CHOKING [None]
  - COUGH [None]
  - DYSPNOEA [None]
  - FOREIGN BODY TRAUMA [None]
  - HYPERSENSITIVITY [None]
  - OBSTRUCTIVE AIRWAYS DISORDER [None]
  - RESPIRATORY ARREST [None]
  - SYNCOPE [None]
